FAERS Safety Report 4494500-6 (Version None)
Quarter: 2004Q4

REPORT INFORMATION
  Report Type: 
  Country: None (occurrence: None)
  Receive Date: 20041102
  Receipt Date: 20040628
  Transmission Date: 20050328
  Serious: Yes (Hospitalization)
  Sender: FDA-Public Use
  Company Number: SHI_00004_2004

PATIENT
  Age: 88 Year
  Sex: Female

DRUGS (6)
  1. ISOCEF [Suspect]
     Indication: CHRONIC OBSTRUCTIVE AIRWAYS DISEASE EXACERBATED
     Dosage: 400 MG QD PO
     Route: 048
     Dates: start: 20040429, end: 20040429
  2. LASIX [Concomitant]
  3. LORANS [Concomitant]
  4. SEREVENT [Concomitant]
  5. LANSOPRAZOLE [Concomitant]
  6. THEOPHYLLINE - SLOW RELEASE    BIAL-ARISTEGUI [Concomitant]

REACTIONS (10)
  - ANAEMIA [None]
  - BRONCHOPNEUMONIA [None]
  - HYPERALDOSTERONISM [None]
  - HYPERCREATININAEMIA [None]
  - HYPOKALAEMIA [None]
  - LEUKOCYTOSIS [None]
  - PRURITUS [None]
  - RASH MACULO-PAPULAR [None]
  - THROMBOCYTOPENIA [None]
  - TOXIC SKIN ERUPTION [None]
